FAERS Safety Report 23511729 (Version 2)
Quarter: 2024Q1

REPORT INFORMATION
  Report Type: Spontaneous
  Country: PL (occurrence: PL)
  Receive Date: 20240212
  Receipt Date: 20240319
  Transmission Date: 20240409
  Serious: Yes (Other)
  Sender: FDA-Public Use
  Company Number: PL-OPELLA-2024OHG003909

PATIENT
  Age: 15 Year
  Sex: Female

DRUGS (1)
  1. DULCOLAX (BISACODYL) [Suspect]
     Active Substance: BISACODYL
     Indication: Constipation
     Dosage: 1 TABLET
     Route: 048

REACTIONS (5)
  - Loss of consciousness [Unknown]
  - Blindness transient [Recovered/Resolved]
  - Visual field defect [Recovered/Resolved]
  - Body temperature decreased [Unknown]
  - Sensory loss [Recovered/Resolved]

NARRATIVE: CASE EVENT DATE: 20231201
